FAERS Safety Report 19574060 (Version 1)
Quarter: 2021Q3

REPORT INFORMATION
  Report Type: Report from Study
  Country: None (occurrence: US)
  Receive Date: 20210718
  Receipt Date: 20210718
  Transmission Date: 20211014
  Serious: Yes (Other)
  Sender: FDA-Public Use
  Company Number: US-ABBVIE-21K-163-3988530-00

PATIENT
  Age: 58 Year
  Sex: Female

DRUGS (1)
  1. SKYRIZI [Suspect]
     Active Substance: RISANKIZUMAB-RZAA
     Indication: PSORIASIS
     Route: 058
     Dates: start: 20201006

REACTIONS (2)
  - Myocardial infarction [Recovered/Resolved]
  - Unevaluable event [Not Recovered/Not Resolved]

NARRATIVE: CASE EVENT DATE: 20210606
